FAERS Safety Report 8327407-4 (Version None)
Quarter: 2012Q2

REPORT INFORMATION
  Report Type: 
  Country: None (occurrence: None)
  Receive Date: 20120430
  Receipt Date: 20120420
  Transmission Date: 20120825
  Serious: Yes (Hospitalization)
  Sender: FDA-Public Use
  Company Number: 2012SP020466

PATIENT
  Age: 58 Year
  Sex: Male
  Weight: 93.5317 kg

DRUGS (7)
  1. FISH OIL [Concomitant]
  2. LOVENOX [Concomitant]
  3. RIBAVIRIN [Suspect]
     Indication: HEPATITIS C
     Dosage: ;UNK;PO
     Route: 048
  4. PROTONIX [Concomitant]
  5. ASPIRIN [Concomitant]
  6. INTERFERON [Suspect]
     Indication: HEPATITIS C
     Dosage: ;UNK;SC
     Route: 058
  7. VICTRELIS [Suspect]
     Indication: HEPATITIS C
     Dosage: ;UNK;PO
     Route: 048

REACTIONS (1)
  - ATRIAL FIBRILLATION [None]
